FAERS Safety Report 19233868 (Version 1)
Quarter: 2021Q2

REPORT INFORMATION
  Report Type: Spontaneous
  Country: US (occurrence: US)
  Receive Date: 20210508
  Receipt Date: 20210508
  Transmission Date: 20210717
  Serious: No
  Sender: FDA-Public Use
  Company Number: US-CELGENEUS-USA-20210406838

PATIENT
  Sex: Female
  Weight: 57.93 kg

DRUGS (19)
  1. THALOMID [Suspect]
     Active Substance: THALIDOMIDE
     Dosage: 200 MILLIGRAM
     Route: 048
     Dates: start: 200208
  2. THALOMID [Suspect]
     Active Substance: THALIDOMIDE
     Dosage: 200 MILLIGRAM
     Route: 048
     Dates: start: 200211
  3. THALOMID [Suspect]
     Active Substance: THALIDOMIDE
     Dosage: 400?200 MILLIGRAM
     Route: 048
     Dates: start: 200901
  4. THALOMID [Suspect]
     Active Substance: THALIDOMIDE
     Dosage: 400 MILLIGRAM
     Route: 048
     Dates: start: 200910
  5. THALOMID [Suspect]
     Active Substance: THALIDOMIDE
     Dosage: 150?100 MILLIGRAM
     Route: 048
     Dates: start: 200112
  6. THALOMID [Suspect]
     Active Substance: THALIDOMIDE
     Dosage: 200 MILLIGRAM
     Route: 048
     Dates: start: 200204
  7. THALOMID [Suspect]
     Active Substance: THALIDOMIDE
     Dosage: 200 MILLIGRAM
     Route: 048
     Dates: start: 200608
  8. THALOMID [Suspect]
     Active Substance: THALIDOMIDE
     Dosage: 200 MILLIGRAM
     Route: 048
     Dates: start: 200612
  9. THALOMID [Suspect]
     Active Substance: THALIDOMIDE
     Dosage: 200 MILLIGRAM
     Route: 048
     Dates: start: 200711
  10. THALOMID [Suspect]
     Active Substance: THALIDOMIDE
     Dosage: 100 MILLIGRAM
     Route: 048
     Dates: start: 200804
  11. THALOMID [Suspect]
     Active Substance: THALIDOMIDE
     Dosage: 200?100 MILLIGRAM
     Route: 048
     Dates: start: 200511
  12. THALOMID [Suspect]
     Active Substance: THALIDOMIDE
     Indication: PLASMA CELL MYELOMA
     Dosage: 200 MILLIGRAM
     Route: 048
     Dates: start: 200108
  13. THALOMID [Suspect]
     Active Substance: THALIDOMIDE
     Dosage: 200 MILLIGRAM
     Route: 048
     Dates: start: 200309
  14. THALOMID [Suspect]
     Active Substance: THALIDOMIDE
     Dosage: 100 MILLIGRAM
     Route: 048
     Dates: start: 201910
  15. THALOMID [Suspect]
     Active Substance: THALIDOMIDE
     Dosage: 200 MILLIGRAM
     Route: 048
     Dates: start: 200507
  16. THALOMID [Suspect]
     Active Substance: THALIDOMIDE
     Dosage: 400 MILLIGRAM
     Route: 048
     Dates: start: 200810
  17. THALOMID [Suspect]
     Active Substance: THALIDOMIDE
     Dosage: 200 MILLIGRAM
     Route: 048
     Dates: start: 200411
  18. THALOMID [Suspect]
     Active Substance: THALIDOMIDE
     Dosage: 200 MILLIGRAM
     Route: 048
     Dates: start: 200407
  19. THALOMID [Suspect]
     Active Substance: THALIDOMIDE
     Dosage: 200 MILLIGRAM
     Route: 048
     Dates: start: 200503

REACTIONS (2)
  - Muscular weakness [Not Recovered/Not Resolved]
  - Hypoaesthesia [Not Recovered/Not Resolved]

NARRATIVE: CASE EVENT DATE: 2020
